FAERS Safety Report 5962493-8 (Version None)
Quarter: 2008Q4

REPORT INFORMATION
  Report Type: 
  Country: None (occurrence: None)
  Receive Date: 20081121
  Receipt Date: 20081114
  Transmission Date: 20090506
  Serious: Yes (Hospitalization, Other)
  Sender: FDA-Public Use
  Company Number: JP-PFIZER INC-2008091616

PATIENT
  Sex: Female
  Weight: 36.5 kg

DRUGS (5)
  1. AZULFIDINE [Suspect]
     Indication: RHEUMATOID ARTHRITIS
     Route: 048
     Dates: start: 20080918, end: 20081016
  2. RINGEREAZE [Suspect]
     Indication: RHEUMATOID ARTHRITIS
     Dosage: TEXT:1 TAB; 3 TAB
     Route: 048
     Dates: start: 20080825, end: 20080101
  3. LASIX [Concomitant]
     Route: 048
     Dates: start: 20080913, end: 20080101
  4. PREDNISOLONE [Concomitant]
     Route: 048
     Dates: start: 20080918
  5. MARZULENE S [Concomitant]
     Route: 048
     Dates: start: 20080919

REACTIONS (4)
  - ANOREXIA [None]
  - DEHYDRATION [None]
  - DIARRHOEA [None]
  - DRUG ERUPTION [None]
